FAERS Safety Report 21884244 (Version 2)
Quarter: 2023Q1

REPORT INFORMATION
  Report Type: Report from Study
  Country: CA (occurrence: CA)
  Receive Date: 20230119
  Receipt Date: 20230224
  Transmission Date: 20230417
  Serious: Yes (Other)
  Sender: FDA-Public Use
  Company Number: CA-002147023-NVSC2023CA010485

PATIENT
  Age: 21 Year
  Sex: Male

DRUGS (2)
  1. HYRIMOZ [Suspect]
     Active Substance: ADALIMUMAB-ADAZ
     Indication: Crohn^s disease
     Dosage: 40 MG
     Route: 058
     Dates: start: 20221027
  2. HYRIMOZ [Suspect]
     Active Substance: ADALIMUMAB-ADAZ
     Dosage: UNK UNK, QW
     Route: 058

REACTIONS (12)
  - Haematochezia [Unknown]
  - Pain [Unknown]
  - Illness [Unknown]
  - Oropharyngeal pain [Unknown]
  - Fatigue [Unknown]
  - Myalgia [Unknown]
  - Nasal congestion [Unknown]
  - Decreased appetite [Unknown]
  - Chills [Unknown]
  - Headache [Unknown]
  - Pyrexia [Unknown]
  - Respiratory tract infection [Unknown]

NARRATIVE: CASE EVENT DATE: 20230212
